FAERS Safety Report 4358151-6 (Version None)
Quarter: 2004Q2

REPORT INFORMATION
  Report Type: 
  Country: None (occurrence: None)
  Receive Date: 20040511
  Receipt Date: 20040429
  Transmission Date: 20050107
  Serious: Yes (Other)
  Sender: FDA-Public Use
  Company Number: GB-JNJFOC-20040406138

PATIENT
  Age: 43 Year
  Sex: Female

DRUGS (4)
  1. REMICADE [Suspect]
     Indication: RENAL CELL CARCINOMA STAGE UNSPECIFIED
     Dosage: 330 MG, INTRAVENOUS
     Route: 042
     Dates: start: 20031229, end: 20040405
  2. TRAMADOL HCL [Concomitant]
  3. ROFECOXIB [Concomitant]
  4. TRAMADOL HCL [Concomitant]

REACTIONS (3)
  - BACK PAIN [None]
  - SPINAL CORD COMPRESSION [None]
  - SPINAL DISORDER [None]
